FAERS Safety Report 5069936-5 (Version None)
Quarter: 2006Q3

REPORT INFORMATION
  Report Type: 
  Country: None (occurrence: None)
  Receive Date: 20060803
  Receipt Date: 20060723
  Transmission Date: 20061208
  Serious: Yes (Other)
  Sender: FDA-Public Use
  Company Number: JP-JNJFOC-20060702918

PATIENT
  Sex: Female
  Weight: 52 kg

DRUGS (14)
  1. INFLIXIMAB, RECOMBINANT [Suspect]
     Dosage: BLINDED DOSAGE OF 3, 6, OR 10 MG/KG
     Route: 042
  2. INFLIXIMAB, RECOMBINANT [Suspect]
     Dosage: BLINDED DOSAGE OF 3, 6, OR 10 MG/KG
     Route: 042
  3. INFLIXIMAB, RECOMBINANT [Suspect]
     Route: 042
  4. INFLIXIMAB, RECOMBINANT [Suspect]
     Route: 042
  5. INFLIXIMAB, RECOMBINANT [Suspect]
     Indication: RHEUMATOID ARTHRITIS
     Route: 042
  6. RHEUMATREX [Concomitant]
     Indication: RHEUMATOID ARTHRITIS
     Route: 048
  7. PREDONINE [Concomitant]
     Indication: RHEUMATOID ARTHRITIS
     Dosage: START DATE: BEFORE 29-NOV-2005
     Route: 048
  8. GLAKAY [Concomitant]
     Indication: PROPHYLAXIS
     Dosage: START DATE: BEFORE 29-NOV-2005
     Route: 048
  9. SELBEX [Concomitant]
     Indication: GASTROINTESTINAL DISORDER THERAPY
     Dosage: START DATE: BEFORE 29-NOV-2005
     Route: 048
  10. MOBIC [Concomitant]
     Indication: RHEUMATOID ARTHRITIS
     Dosage: START DATE: BEFORE 29-NOV-2005
     Route: 048
  11. ISCOTIN [Concomitant]
     Route: 048
  12. ISCOTIN [Concomitant]
     Dosage: START DATE: BEFORE 29-NOV-2005
     Route: 048
  13. ISCOTIN [Concomitant]
     Indication: ANTIBIOTIC PROPHYLAXIS
     Dosage: START DATE: BEFORE 29-NOV-2005
     Route: 048
  14. BONALON [Concomitant]
     Indication: PROPHYLAXIS
     Dosage: START DATE: BEFORE 22-DEC-2005
     Route: 048

REACTIONS (2)
  - BREAST CANCER [None]
  - LIVER DISORDER [None]
